FAERS Safety Report 18860648 (Version 3)
Quarter: 2021Q4

REPORT INFORMATION
  Report Type: Spontaneous
  Country: US (occurrence: US)
  Receive Date: 20210208
  Receipt Date: 20211015
  Transmission Date: 20220303
  Serious: No
  Sender: FDA-Public Use
  Company Number: US-CELGENE-USA-20210107352

PATIENT
  Sex: Male

DRUGS (3)
  1. REVLIMID [Suspect]
     Active Substance: LENALIDOMIDE
     Indication: Plasma cell myeloma
     Dosage: 15 MILLIGRAM
     Route: 048
     Dates: start: 202005
  2. REVLIMID [Suspect]
     Active Substance: LENALIDOMIDE
     Dosage: 10 MILLIGRAM
     Route: 048
     Dates: start: 20210120
  3. VITAMINS [Concomitant]
     Active Substance: VITAMINS
     Indication: Product used for unknown indication
     Route: 065

REACTIONS (5)
  - Groin pain [Unknown]
  - Constipation [Unknown]
  - Rash pruritic [Unknown]
  - Anaemia [Unknown]
  - Urticaria [Unknown]
